FAERS Safety Report 6025930-9 (Version None)
Quarter: 2009Q1

REPORT INFORMATION
  Report Type: 
  Country: None (occurrence: None)
  Receive Date: 20090102
  Receipt Date: 20081219
  Transmission Date: 20090719
  Serious: Yes (Hospitalization)
  Sender: FDA-Public Use
  Company Number: JP-ROCHE-605340

PATIENT
  Sex: Female
  Weight: 60 kg

DRUGS (6)
  1. XELODA [Suspect]
     Indication: COLON CANCER
     Dosage: DRUG: XELODA 300
     Route: 048
     Dates: start: 20081202, end: 20081207
  2. MYSLEE [Concomitant]
     Route: 048
  3. DIOVAN [Concomitant]
     Route: 048
  4. NITRODERM [Concomitant]
     Dosage: FORM: TAPE
     Route: 062
  5. MAGMITT [Concomitant]
     Route: 048
  6. LAC-B [Concomitant]
     Dosage: FORM: FINE GRANULES
     Route: 048

REACTIONS (2)
  - LARGE INTESTINE PERFORATION [None]
  - PERITONITIS [None]
